FAERS Safety Report 4422718-7 (Version None)
Quarter: 2004Q3

REPORT INFORMATION
  Report Type: 
  Country: None (occurrence: None)
  Receive Date: 20040713
  Receipt Date: 20030804
  Transmission Date: 20050211
  Serious: No
  Sender: FDA-Public Use
  Company Number: PHEH2003US06865

PATIENT
  Age: 58 Year
  Sex: Female

DRUGS (6)
  1. ELIDEL [Suspect]
     Indication: DERMATITIS CONTACT
     Dosage: BID, TOPICAL
     Route: 061
     Dates: start: 20030712, end: 20030722
  2. ELIDEL [Suspect]
     Indication: DERMATITIS CONTACT
     Dosage: BID, TOPICAL
     Route: 061
     Dates: start: 20030726, end: 20030802
  3. ATENOLOL [Concomitant]
  4. UNITHROID [Concomitant]
  5. AMBIEN [Concomitant]
  6. MULTIVITAMIN [Concomitant]

REACTIONS (8)
  - COUGH [None]
  - DRY MOUTH [None]
  - GLOSSODYNIA [None]
  - HEADACHE [None]
  - INFLUENZA LIKE ILLNESS [None]
  - LARYNGITIS [None]
  - MUSCULOSKELETAL STIFFNESS [None]
  - PAIN [None]
